FAERS Safety Report 24913414 (Version 1)
Quarter: 2025Q1

REPORT INFORMATION
  Report Type: Spontaneous
  Country: ES (occurrence: ES)
  Receive Date: 20250201
  Receipt Date: 20250201
  Transmission Date: 20250409
  Serious: Yes (Hospitalization)
  Sender: ACCORD
  Company Number: None

PATIENT
  Age: 71 Year
  Sex: Male
  Weight: 82.2 kg

DRUGS (4)
  1. SPIRONOLACTONE [Interacting]
     Active Substance: SPIRONOLACTONE
     Indication: Cardiac failure congestive
     Dosage: 100MG EVERY 24 HOURS UNTIL 19/09/2024, DOSE REDUCED TO 25MG PER DAY UNTIL 23/09/2024
     Dates: start: 20240904, end: 20240916
  2. ACETAZOLAMIDE [Interacting]
     Active Substance: ACETAZOLAMIDE
     Indication: Cardiac failure congestive
     Dosage: 250 MG EVERY 24 HOURS?20 TABLETS
     Dates: start: 20240621, end: 20240923
  3. FUROSEMIDE [Interacting]
     Active Substance: FUROSEMIDE
     Indication: Cardiac failure congestive
     Dosage: 120 MG AT BREAKFAST AND 120 MG AT LUNCH?40 MG TABLETS, 30 TABLETS
     Dates: start: 20240621, end: 20240923
  4. SPIRONOLACTONE [Interacting]
     Active Substance: SPIRONOLACTONE
     Indication: Cardiac failure congestive
     Dates: start: 20240917, end: 20240923

REACTIONS (3)
  - Hyperkalaemia [Recovered/Resolved]
  - Acute kidney injury [Recovered/Resolved]
  - Metabolic acidosis [Recovered/Resolved]

NARRATIVE: CASE EVENT DATE: 20240916
